FAERS Safety Report 7942183-2 (Version None)
Quarter: 2011Q4

REPORT INFORMATION
  Report Type: 
  Country: None (occurrence: None)
  Receive Date: 20111114
  Receipt Date: 20110104
  Transmission Date: 20120403
  Serious: Yes (Other)
  Sender: FDA-Public Use
  Company Number: 2011S1000005

PATIENT
  Age: 29 Year
  Sex: Female
  Weight: 193.5 kg

DRUGS (10)
  1. LINEZOLID [Concomitant]
  2. PIPERACILLIN AND TAZOBACTAM [Concomitant]
  3. CEFAZOLIN [Concomitant]
  4. AZITHROMYCIN [Concomitant]
  5. AUGMENTIN [Concomitant]
  6. CIPROFLOXACIN [Concomitant]
  7. CUBICIN [Suspect]
     Indication: BACTERAEMIA
     Dosage: 5.0 MG/KG;Q48H;IV
     Route: 042
  8. IMIPENEM [Concomitant]
  9. ANTIBIOTICS [Concomitant]
  10. VANCOMYCIN [Concomitant]

REACTIONS (2)
  - RENAL TUBULAR NECROSIS [None]
  - URINARY TRACT INFECTION BACTERIAL [None]
